FAERS Safety Report 4614034-5 (Version None)
Quarter: 2005Q1

REPORT INFORMATION
  Report Type: 
  Country: None (occurrence: None)
  Receive Date: 20050316
  Receipt Date: 20050301
  Transmission Date: 20050727
  Serious: Yes (Life-Threatening, Hospitalization, Other)
  Sender: FDA-Public Use
  Company Number: FR_041205475

PATIENT
  Age: 20 Year
  Sex: Male
  Weight: 67 kg

DRUGS (1)
  1. STRATTERA [Suspect]
     Indication: ATTENTION DEFICIT/HYPERACTIVITY DISORDER
     Dates: start: 20020101, end: 20041224

REACTIONS (9)
  - AGGRESSION [None]
  - CEREBRAL HAEMATOMA [None]
  - COMA [None]
  - DELUSION [None]
  - DRUG INTERACTION [None]
  - HEPATIC TRAUMA [None]
  - INTENTIONAL SELF-INJURY [None]
  - PERSECUTORY DELUSION [None]
  - RENAL INJURY [None]
